FAERS Safety Report 7104848-4 (Version None)
Quarter: 2010Q4

REPORT INFORMATION
  Report Type: 
  Country: None (occurrence: None)
  Receive Date: 20101109
  Receipt Date: 20101028
  Transmission Date: 20110411
  Serious: Yes (Hospitalization)
  Sender: FDA-Public Use
  Company Number: 2010MA004068

PATIENT
  Age: 53 Year
  Sex: Male

DRUGS (5)
  1. FLUOXETINE [Suspect]
     Indication: DEPRESSION
     Dosage: 40 MG;QD
     Dates: end: 20101014
  2. THIAMINE HCL [Concomitant]
  3. ACAMPROSATE [Concomitant]
  4. CLOBETASOL [Concomitant]
  5. TRIMOVATE [Concomitant]

REACTIONS (1)
  - LICHEN PLANUS [None]
